FAERS Safety Report 14789071 (Version 2)
Quarter: 2018Q2

REPORT INFORMATION
  Report Type: Spontaneous
  Country: CA (occurrence: CA)
  Receive Date: 20180423
  Receipt Date: 20180511
  Transmission Date: 20180711
  Serious: Yes (Hospitalization, Other)
  Sender: FDA-Public Use
  Company Number: CA-APOTEX-2018AP010408

PATIENT
  Sex: Male

DRUGS (1)
  1. APO-PHENYTOIN SODIUM [Suspect]
     Active Substance: PHENYTOIN SODIUM
     Indication: SEIZURE
     Dosage: AS NEEDED
     Route: 065

REACTIONS (3)
  - Drug screen negative [Recovered/Resolved]
  - Product substitution issue [Unknown]
  - Drug ineffective [Unknown]
